FAERS Safety Report 7620410-9 (Version None)
Quarter: 2011Q3

REPORT INFORMATION
  Report Type: 
  Country: None (occurrence: None)
  Receive Date: 20110719
  Receipt Date: 20110718
  Transmission Date: 20111222
  Serious: Yes (Hospitalization)
  Sender: FDA-Public Use
  Company Number: PHHO2010DE16331

PATIENT
  Sex: Female
  Weight: 55 kg

DRUGS (3)
  1. VALETTE [Concomitant]
     Indication: CONTRACEPTION
     Dosage: UNK
     Dates: start: 20060901
  2. GILENYA [Suspect]
     Dosage: 0.5MG
     Route: 048
     Dates: start: 20100222
  3. GILENYA [Suspect]
     Indication: MULTIPLE SCLEROSIS
     Dosage: DOSE BLINDED
     Route: 048
     Dates: start: 20090525, end: 20100106

REACTIONS (1)
  - ABDOMINAL PAIN [None]
